FAERS Safety Report 25626521 (Version 2)
Quarter: 2025Q3

REPORT INFORMATION
  Report Type: Spontaneous
  Country: EU (occurrence: EU)
  Receive Date: 20250731
  Receipt Date: 20250816
  Transmission Date: 20251020
  Serious: Yes (Hospitalization)
  Sender: AUROBINDO
  Company Number: EU-ARENA-2025-00113

PATIENT
  Age: 9 Month

DRUGS (1)
  1. CEFUROXIME [Suspect]
     Active Substance: CEFUROXIME
     Indication: Antibiotic therapy
     Route: 065

REACTIONS (2)
  - Inflammatory marker increased [Recovered/Resolved]
  - Condition aggravated [Recovered/Resolved]
